FAERS Safety Report 7866832-2 (Version None)
Quarter: 2011Q4

REPORT INFORMATION
  Report Type: 
  Country: None (occurrence: None)
  Receive Date: 20111028
  Receipt Date: 20110831
  Transmission Date: 20120403
  Serious: Yes (Life-Threatening, Other)
  Sender: FDA-Public Use
  Company Number: US-GLAXOSMITHKLINE-A0943015A

PATIENT
  Age: 33 Year
  Sex: Female

DRUGS (9)
  1. FLAX SEED OIL [Concomitant]
  2. RANITIDINE [Concomitant]
     Indication: PRODUCT USED FOR UNKNOWN INDICATION
     Route: 065
  3. GUAIFENESIN [Concomitant]
  4. SUDAFED 12 HOUR [Concomitant]
  5. LORATADINE [Concomitant]
  6. CETIRIZINE HCL [Concomitant]
  7. ADVAIR DISKUS 100/50 [Suspect]
     Indication: ASTHMA
     Dosage: 1PUFF TWICE PER DAY
     Route: 055
  8. BIRTH CONTROL PILL [Concomitant]
  9. UNSPECIFIED DRUG [Concomitant]

REACTIONS (6)
  - ANAPHYLACTIC REACTION [None]
  - PRESYNCOPE [None]
  - DIZZINESS [None]
  - HYPOTENSION [None]
  - CIRCULATORY COLLAPSE [None]
  - CHEST DISCOMFORT [None]
